FAERS Safety Report 7245442-4 (Version None)
Quarter: 2011Q1

REPORT INFORMATION
  Report Type: 
  Country: None (occurrence: None)
  Receive Date: 20110118
  Receipt Date: 20110106
  Transmission Date: 20110831
  Serious: Yes (Other)
  Sender: FDA-Public Use
  Company Number: 025035

PATIENT
  Age: 40 Year
  Sex: Female

DRUGS (2)
  1. LAMOTRIGINE [Concomitant]
  2. VIMPAT [Suspect]
     Dosage: 100 MG BID

REACTIONS (3)
  - RESTLESSNESS [None]
  - AGGRESSION [None]
  - MALAISE [None]
